FAERS Safety Report 15799028 (Version 2)
Quarter: 2019Q1

REPORT INFORMATION
  Report Type: Report from Study
  Country: CA (occurrence: CA)
  Receive Date: 20190108
  Receipt Date: 20190207
  Transmission Date: 20190417
  Serious: Yes (Hospitalization, Other)
  Sender: FDA-Public Use
  Company Number: CA-JNJFOC-20181208780

PATIENT
  Sex: Male

DRUGS (2)
  1. IMBRUVICA [Suspect]
     Active Substance: IBRUTINIB
     Indication: CHRONIC LYMPHOCYTIC LEUKAEMIA
     Dosage: STRENGTH = 140 MG
     Route: 048
     Dates: start: 20181119
  2. INDAPAMIDE. [Concomitant]
     Active Substance: INDAPAMIDE
     Route: 065

REACTIONS (11)
  - Chills [Unknown]
  - Joint swelling [Recovering/Resolving]
  - Pyrexia [Unknown]
  - Dehydration [Unknown]
  - Peripheral swelling [Unknown]
  - Iritis [Unknown]
  - Lymphadenopathy [Unknown]
  - Syncope [Unknown]
  - Joint injury [Unknown]
  - Pneumonia [Unknown]
  - Burning sensation [Unknown]

NARRATIVE: CASE EVENT DATE: 2018
